FAERS Safety Report 5413796-7 (Version None)
Quarter: 2007Q3

REPORT INFORMATION
  Report Type: 
  Country: None (occurrence: None)
  Receive Date: 20070810
  Receipt Date: 20070720
  Transmission Date: 20080115
  Serious: Yes (Hospitalization)
  Sender: FDA-Public Use
  Company Number: 2007RR-08840

PATIENT
  Age: 33 Year
  Sex: Female

DRUGS (2)
  1. DOXYCYCLINE [Suspect]
     Indication: PELVIC INFLAMMATORY DISEASE
     Dosage: 100 MG, BID, ORAL
     Route: 048
  2. FAMOTIDINA RANBAXY COMPRIMIDOS EFG (FAMOTIDINE) [Concomitant]

REACTIONS (3)
  - GASTRIC ULCER [None]
  - ODYNOPHAGIA [None]
  - OESOPHAGEAL ULCER [None]
